FAERS Safety Report 25184648 (Version 2)
Quarter: 2025Q2

REPORT INFORMATION
  Report Type: Report from Study
  Country: US (occurrence: US)
  Receive Date: 20250410
  Receipt Date: 20250416
  Transmission Date: 20250716
  Serious: Yes (Hospitalization)
  Sender: AMGEN
  Company Number: US-AMGEN-USASP2025066857

PATIENT
  Sex: Male

DRUGS (2)
  1. ACTIMMUNE [Suspect]
     Active Substance: INTERFERON GAMMA-1B
     Indication: Chronic granulomatous disease
     Dosage: UNK UNK, 3 TIMES/WK
     Route: 065
     Dates: start: 20131003
  2. ACTIMMUNE [Suspect]
     Active Substance: INTERFERON GAMMA-1B
     Indication: Neutrophil function disorder
     Dosage: UNK UNK, 3 TIMES/WK
     Route: 065

REACTIONS (4)
  - Osteomyelitis [Not Recovered/Not Resolved]
  - Pain [Unknown]
  - Therapy interrupted [Unknown]
  - Treatment noncompliance [Unknown]
